FAERS Safety Report 4303128-X (Version None)
Quarter: 2004Q1

REPORT INFORMATION
  Report Type: 
  Country: None (occurrence: None)
  Receive Date: 20040224
  Receipt Date: 20040218
  Transmission Date: 20041129
  Serious: Yes (Life-Threatening, Hospitalization)
  Sender: FDA-Public Use
  Company Number: NL-ROCHE-359327

PATIENT
  Age: 64 Year
  Sex: Male

DRUGS (5)
  1. XELODA [Suspect]
     Indication: COLON CANCER
     Route: 048
     Dates: start: 20031128, end: 20031219
  2. ELOXATIN [Suspect]
     Indication: COLON CANCER
     Route: 051
     Dates: start: 20031128
  3. LORAZEPAMUM [Concomitant]
     Indication: SLEEP DISORDER
     Route: 048
  4. METFORMIN HCL [Concomitant]
     Route: 048
  5. INSULIN MIXTARD [Concomitant]
     Indication: DIABETES MELLITUS

REACTIONS (3)
  - DUODENAL ULCER HAEMORRHAGE [None]
  - MUCOUS MEMBRANE DISORDER [None]
  - NECROSIS [None]
